FAERS Safety Report 5898579-6 (Version None)
Quarter: 2008Q3

REPORT INFORMATION
  Report Type: 
  Country: None (occurrence: None)
  Receive Date: 20080925
  Receipt Date: 20080131
  Transmission Date: 20090109
  Serious: No
  Sender: FDA-Public Use
  Company Number: A0707864A

PATIENT
  Age: 40 Year
  Sex: Female

DRUGS (2)
  1. WELLBUTRIN XL [Suspect]
     Indication: DEPRESSION
     Route: 048
     Dates: start: 20071101
  2. UNKNOWN [Concomitant]

REACTIONS (3)
  - ELEVATED MOOD [None]
  - ENERGY INCREASED [None]
  - WEIGHT DECREASED [None]
